FAERS Safety Report 8073865-2 (Version None)
Quarter: 2012Q1

REPORT INFORMATION
  Report Type: 
  Country: None (occurrence: None)
  Receive Date: 20120126
  Receipt Date: 20120118
  Transmission Date: 20120608
  Serious: Yes (Hospitalization, Other)
  Sender: FDA-Public Use
  Company Number: CH-BRISTOL-MYERS SQUIBB COMPANY-16357816

PATIENT
  Age: 50 Year
  Sex: Male

DRUGS (6)
  1. QUININE SULFATE [Interacting]
     Indication: MALARIA
     Route: 041
     Dates: start: 20111129, end: 20111130
  2. LAMIVUDINE [Concomitant]
     Indication: HIV INFECTION
     Route: 048
     Dates: start: 20110401
  3. MARAVIROC [Suspect]
     Indication: HIV INFECTION
     Route: 048
     Dates: start: 20110401
  4. ISENTRESS [Suspect]
     Indication: HIV INFECTION
     Route: 048
     Dates: start: 20110401
  5. REYATAZ [Interacting]
     Indication: HIV INFECTION
     Route: 048
     Dates: start: 20110401
  6. NORVIR [Interacting]
     Indication: HIV INFECTION
     Route: 048
     Dates: start: 20110401

REACTIONS (3)
  - MALARIA [None]
  - MYALGIA [None]
  - DRUG INTERACTION [None]
